FAERS Safety Report 16307330 (Version 1)
Quarter: 2019Q2

REPORT INFORMATION
  Report Type: Spontaneous
  Country: GB (occurrence: GB)
  Receive Date: 20190514
  Receipt Date: 20190514
  Transmission Date: 20190711
  Serious: Yes (Other)
  Sender: FDA-Public Use
  Company Number: GB-B.I. PHARMACEUTICALS,INC./RIDGEFIELD-2019-MI-000340

PATIENT
  Sex: Male

DRUGS (1)
  1. TRAJENTA [Suspect]
     Active Substance: LINAGLIPTIN
     Indication: PRODUCT USED FOR UNKNOWN INDICATION
     Route: 065
     Dates: start: 201707

REACTIONS (2)
  - Cerebrovascular accident [Unknown]
  - Dysphagia [Unknown]

NARRATIVE: CASE EVENT DATE: 201811
